FAERS Safety Report 9970270 (Version 2)
Quarter: 2014Q1

REPORT INFORMATION
  Report Type: Spontaneous
  Country: US (occurrence: US)
  Receive Date: 20140306
  Receipt Date: 20140316
  Transmission Date: 20141002
  Serious: Yes (Hospitalization, Other)
  Sender: FDA-Public Use
  Company Number: US-BAYER-2014-032370

PATIENT
  Age: 21 Year
  Sex: Female
  Weight: 55.33 kg

DRUGS (4)
  1. MIRENA [Suspect]
     Indication: CONTRACEPTION
     Dosage: 20 MCG/24HR, CONT
     Route: 015
     Dates: start: 200801, end: 20100409
  2. SEASONIQUE [Concomitant]
  3. LOESTRIN [Concomitant]
  4. TRINESSA [Concomitant]

REACTIONS (7)
  - Uterine perforation [None]
  - Pelvic pain [None]
  - Genital haemorrhage [None]
  - Abdominal pain lower [None]
  - Injury [None]
  - Emotional distress [None]
  - Pain [None]
